FAERS Safety Report 11061205 (Version 1)
Quarter: 2015Q2

REPORT INFORMATION
  Report Type: Spontaneous
  Country: US (occurrence: US)
  Receive Date: 20150424
  Receipt Date: 20150424
  Transmission Date: 20150821
  Serious: No
  Sender: FDA-Public Use
  Company Number: US-ASTRAZENECA-2015SE37871

PATIENT
  Sex: Female

DRUGS (5)
  1. PRILOSEC [Interacting]
     Active Substance: OMEPRAZOLE MAGNESIUM
     Route: 048
  2. PRILOSEC OTC [Suspect]
     Active Substance: OMEPRAZOLE MAGNESIUM
     Route: 048
  3. SOTALOL. [Interacting]
     Active Substance: SOTALOL
     Route: 065
  4. PAXIL [Interacting]
     Active Substance: PAROXETINE HYDROCHLORIDE
     Route: 065
  5. HARVONI [Interacting]
     Active Substance: LEDIPASVIR\SOFOSBUVIR
     Route: 065

REACTIONS (4)
  - Drug interaction [Unknown]
  - Blood pressure increased [Unknown]
  - Vision blurred [Unknown]
  - Headache [Unknown]

NARRATIVE: CASE EVENT DATE: 20150202
